FAERS Safety Report 26056418 (Version 1)
Quarter: 2025Q4

REPORT INFORMATION
  Report Type: Spontaneous
  Country: US (occurrence: US)
  Receive Date: 20251118
  Receipt Date: 20251118
  Transmission Date: 20260118
  Serious: No
  Sender: BRISTOL-MYERS SQUIBB COMPANY
  Company Number: US-BRISTOL-MYERS SQUIBB COMPANY-2025-155761

PATIENT
  Age: 63 Year
  Sex: Female

DRUGS (1)
  1. COBENFY [Suspect]
     Active Substance: TROSPIUM CHLORIDE\XANOMELINE
     Indication: Schizophrenia
     Dosage: DOSE: 50-20 MILLIGRAM
     Route: 048
     Dates: start: 20250724, end: 20251107

REACTIONS (1)
  - Mobility decreased [Recovering/Resolving]

NARRATIVE: CASE EVENT DATE: 20251024
